FAERS Safety Report 9432227 (Version 1)
Quarter: 2013Q3

REPORT INFORMATION
  Report Type: Report from Study
  Country: ZA (occurrence: ZA)
  Receive Date: 20130731
  Receipt Date: 20130731
  Transmission Date: 20140515
  Serious: Yes (Hospitalization)
  Sender: FDA-Public Use
  Company Number: PHHY2013ZA080700

PATIENT
  Age: 88 Year
  Sex: Female

DRUGS (2)
  1. ACLASTA [Suspect]
     Indication: OSTEOPOROSIS
     Dosage: 5 MG/100 ML, UNK
     Route: 042
     Dates: start: 201108
  2. ACLASTA [Suspect]
     Dosage: 5 MG/100 ML, UNK
     Route: 042
     Dates: start: 201208

REACTIONS (2)
  - Fall [Unknown]
  - Neck injury [Unknown]
